FAERS Safety Report 5409352-7 (Version None)
Quarter: 2007Q3

REPORT INFORMATION
  Report Type: 
  Country: None (occurrence: None)
  Receive Date: 20070807
  Receipt Date: 20070807
  Transmission Date: 20080115
  Serious: Yes (Death, Life-Threatening, Hospitalization)
  Sender: FDA-Public Use
  Company Number: None

PATIENT
  Age: 97 Year
  Sex: Female
  Weight: 65 kg

DRUGS (9)
  1. WARFARIN SODIUM [Suspect]
     Indication: ATRIAL FIBRILLATION
     Dosage: 4MG DAILY PO
     Route: 048
  2. ACETAMINOPHEN [Concomitant]
  3. CELEXA [Concomitant]
  4. NAMENDA [Concomitant]
  5. NITROGLYCERIN [Concomitant]
  6. RANITIDINE [Concomitant]
  7. TRAMADOL HCL [Concomitant]
  8. LACTAID [Concomitant]
  9. M.V.I. [Concomitant]

REACTIONS (5)
  - APNOEA [None]
  - HAEMORRHAGE INTRACRANIAL [None]
  - HYPERTENSIVE EMERGENCY [None]
  - INTERNATIONAL NORMALISED RATIO INCREASED [None]
  - PULSE ABSENT [None]
